FAERS Safety Report 6840269-7 (Version None)
Quarter: 2010Q3

REPORT INFORMATION
  Report Type: 
  Country: None (occurrence: None)
  Receive Date: 20100713
  Receipt Date: 20100713
  Transmission Date: 20110219
  Serious: Yes (Other)
  Sender: FDA-Public Use
  Company Number: None

PATIENT
  Sex: Male
  Weight: 87.0906 kg

DRUGS (1)
  1. TAMULOSIN 0.4MG TEVA USA [Suspect]
     Indication: BENIGN PROSTATIC HYPERPLASIA
     Dosage: ONE DAILY PO
     Route: 048
     Dates: start: 20100129, end: 20100712

REACTIONS (2)
  - COLD SWEAT [None]
  - CONVULSION [None]
